FAERS Safety Report 8965484 (Version 1)
Quarter: 2012Q4

REPORT INFORMATION
  Report Type: 
  Country: US (occurrence: US)
  Receive Date: 20121213
  Receipt Date: 20121213
  Transmission Date: 20130627
  Serious: No
  Sender: FDA-Public Use
  Company Number: US-PFIZER INC-2012310525

PATIENT
  Age: 67 Year
  Sex: Male
  Weight: 81.63 kg

DRUGS (6)
  1. LYRICA [Suspect]
     Indication: DIABETIC NEUROPATHY
     Dosage: 150 mg, daily
     Dates: start: 201211
  2. LIPITOR [Concomitant]
     Indication: HIGH CHOLESTEROL
     Dosage: 40 mg, daily
  3. ATENOLOL [Concomitant]
     Indication: BLOOD PRESSURE HIGH
     Dosage: 100 mg, daily
  4. PLAVIX [Concomitant]
     Indication: PERIPHERAL ARTERIAL DISEASE
     Dosage: 75 mg, daily
  5. LISINOPRIL [Concomitant]
     Indication: BLOOD PRESSURE HIGH
     Dosage: 10 mg, daily
  6. METFORMIN [Concomitant]
     Indication: DIABETES
     Dosage: 1000 mg, 2x/day

REACTIONS (5)
  - Drug ineffective [Unknown]
  - Oedema peripheral [Not Recovered/Not Resolved]
  - Middle insomnia [Unknown]
  - Pain [Unknown]
  - Glycosylated haemoglobin increased [Unknown]
